FAERS Safety Report 4358053-5 (Version None)
Quarter: 2004Q2

REPORT INFORMATION
  Report Type: 
  Country: None (occurrence: None)
  Receive Date: 20040514
  Receipt Date: 20040423
  Transmission Date: 20050107
  Serious: Yes (Other)
  Sender: FDA-Public Use
  Company Number: 200411504JP

PATIENT
  Age: 70 Year
  Sex: Female
  Weight: 54 kg

DRUGS (7)
  1. LASIX [Suspect]
     Route: 048
     Dates: start: 20011005, end: 20011221
  2. METHIMAZOLE [Concomitant]
     Dosage: DOSE: 1 TABLET
     Route: 048
     Dates: start: 20011005
  3. THYRADIN S [Concomitant]
     Route: 048
     Dates: start: 20011005
  4. ALFAROL [Concomitant]
     Route: 048
     Dates: start: 20011005, end: 20031222
  5. CALCIUM LACTATE [Concomitant]
     Route: 048
     Dates: start: 20011005
  6. NU-LOTAN [Concomitant]
     Route: 048
     Dates: start: 20011005, end: 20011221
  7. AZELASTINE HCL [Concomitant]
     Dosage: DOSE: 2 TABLET
     Route: 048
     Dates: start: 20011102, end: 20031221

REACTIONS (4)
  - BLOOD CREATININE DECREASED [None]
  - MEDICATION ERROR [None]
  - RENAL ATROPHY [None]
  - RENAL IMPAIRMENT [None]
